FAERS Safety Report 11377884 (Version 1)
Quarter: 2015Q3

REPORT INFORMATION
  Report Type: Spontaneous
  Country: US (occurrence: US)
  Receive Date: 20150811
  Receipt Date: 20150811
  Transmission Date: 20151125
  Serious: No
  Sender: FDA-Public Use
  Company Number: US-ELI_LILLY_AND_COMPANY-US200911000594

PATIENT
  Sex: Male

DRUGS (3)
  1. HUMULIN L [Suspect]
     Active Substance: INSULIN HUMAN
     Dates: end: 2006
  2. HUMULIN N [Suspect]
     Active Substance: INSULIN HUMAN
  3. LANTUS [Concomitant]
     Active Substance: INSULIN GLARGINE

REACTIONS (2)
  - Nutritional condition abnormal [Not Recovered/Not Resolved]
  - Mental impairment [Not Recovered/Not Resolved]
